FAERS Safety Report 5369289-9 (Version None)
Quarter: 2007Q2

REPORT INFORMATION
  Report Type: 
  Country: None (occurrence: None)
  Receive Date: 20070625
  Receipt Date: 20070612
  Transmission Date: 20071010
  Serious: Yes (Hospitalization, Other)
  Sender: FDA-Public Use
  Company Number: SE-ELI_LILLY_AND_COMPANY-EWC030434494

PATIENT
  Age: 36 Year
  Sex: Male

DRUGS (1)
  1. ZYPREXA [Suspect]
     Dosage: 550 MG, OTHER
     Route: 048

REACTIONS (7)
  - AGGRESSION [None]
  - CONVULSION [None]
  - DRUG TOXICITY [None]
  - DYSARTHRIA [None]
  - INTENTIONAL OVERDOSE [None]
  - SUICIDE ATTEMPT [None]
  - VOMITING [None]
